FAERS Safety Report 19251366 (Version 2)
Quarter: 2021Q2

REPORT INFORMATION
  Report Type: Spontaneous
  Country: US (occurrence: US)
  Receive Date: 20210513
  Receipt Date: 20210520
  Transmission Date: 20210717
  Serious: No
  Sender: FDA-Public Use
  Company Number: NVSC2021US107268

PATIENT
  Sex: Male

DRUGS (1)
  1. PATADAY [Suspect]
     Active Substance: OLOPATADINE HYDROCHLORIDE
     Indication: SEASONAL ALLERGY
     Dosage: 2.5 ML, QD
     Route: 065

REACTIONS (3)
  - Condition aggravated [Not Recovered/Not Resolved]
  - Ocular hyperaemia [Not Recovered/Not Resolved]
  - Eye pruritus [Not Recovered/Not Resolved]
